FAERS Safety Report 4320586-5 (Version None)
Quarter: 2004Q1

REPORT INFORMATION
  Report Type: 
  Country: None (occurrence: None)
  Receive Date: 20040319
  Receipt Date: 20040319
  Transmission Date: 20041129
  Serious: No
  Sender: FDA-Public Use
  Company Number: None

PATIENT
  Age: 85 Year
  Sex: Female
  Weight: 75 kg

DRUGS (1)
  1. TEQUIN [Suspect]
     Indication: BRONCHITIS
     Dates: start: 20040312, end: 20040313

REACTIONS (1)
  - HYPOGLYCAEMIA [None]
